FAERS Safety Report 6728954-9 (Version None)
Quarter: 2010Q2

REPORT INFORMATION
  Report Type: 
  Country: None (occurrence: None)
  Receive Date: 20100517
  Receipt Date: 20100317
  Transmission Date: 20101027
  Serious: No
  Sender: FDA-Public Use
  Company Number: US-ABBOTT-10P-163-0632920-00

PATIENT
  Sex: Female
  Weight: 90.8 kg

DRUGS (2)
  1. SIMCOR [Suspect]
     Indication: BLOOD CHOLESTEROL INCREASED
     Dates: start: 20100314
  2. SIMCOR [Suspect]
     Indication: LOW DENSITY LIPOPROTEIN INCREASED

REACTIONS (5)
  - ASTHENIA [None]
  - LACRIMATION INCREASED [None]
  - MALAISE [None]
  - RHINORRHOEA [None]
  - VOMITING [None]
